FAERS Safety Report 6971440-1 (Version None)
Quarter: 2010Q3

REPORT INFORMATION
  Report Type: 
  Country: None (occurrence: None)
  Receive Date: 20100903
  Receipt Date: 20100827
  Transmission Date: 20110219
  Serious: Yes (Other)
  Sender: FDA-Public Use
  Company Number: ZYD-10-AE-187

PATIENT
  Sex: Female

DRUGS (1)
  1. RIBAVIRIN [Suspect]

REACTIONS (4)
  - DRUG DOSE OMISSION [None]
  - PRURITUS [None]
  - RASH [None]
  - SKIN HAEMORRHAGE [None]
